FAERS Safety Report 24001404 (Version 1)
Quarter: 2024Q2

REPORT INFORMATION
  Report Type: Spontaneous
  Country: US (occurrence: US)
  Receive Date: 20240621
  Receipt Date: 20240621
  Transmission Date: 20240716
  Serious: Yes (Other)
  Sender: FDA-Public Use
  Company Number: US-MYLANLABS-2024M1056524

PATIENT
  Sex: Female

DRUGS (2)
  1. DOCETAXEL [Suspect]
     Active Substance: DOCETAXEL\DOCETAXEL ANHYDROUS
     Indication: Bladder cancer
     Dosage: EVERY WEEK FOR 6 WEEKS, THEN ONCE MONTHLY THEREAFTER.
     Route: 043
     Dates: start: 20240112, end: 202405
  2. GEMCITABINE [Suspect]
     Active Substance: GEMCITABINE
     Indication: Bladder cancer
     Dosage: EVERY WEEK FOR 6 WEEKS, THEN ONCE MONTHLY THEREAFTER.
     Route: 043
     Dates: start: 20240112, end: 202405

REACTIONS (1)
  - Bladder cancer recurrent [Unknown]

NARRATIVE: CASE EVENT DATE: 20240101
